FAERS Safety Report 6730773-4 (Version None)
Quarter: 2010Q2

REPORT INFORMATION
  Report Type: 
  Country: None (occurrence: None)
  Receive Date: 20100514
  Receipt Date: 20100427
  Transmission Date: 20101027
  Serious: Yes (Disabling, Other)
  Sender: FDA-Public Use
  Company Number: 1-22407914

PATIENT
  Age: 90 Year
  Sex: Female
  Weight: 81.6475 kg

DRUGS (2)
  1. WARFARIN SODIUM [Suspect]
     Indication: CARDIAC FAILURE
     Dosage: 3.5 MG 3X/WK; 2 MG 4X/WK, ORAL
     Route: 048
     Dates: start: 20100101
  2. WARFARIN SODIUM [Suspect]
     Indication: KNEE OPERATION
     Dosage: 3.5 MG 3X/WK; 2 MG 4X/WK, ORAL
     Route: 048
     Dates: start: 20100101

REACTIONS (8)
  - CONTUSION [None]
  - FACIAL BONES FRACTURE [None]
  - FALL [None]
  - FEAR [None]
  - GAIT DISTURBANCE [None]
  - HEAD INJURY [None]
  - PERIORBITAL HAEMATOMA [None]
  - TREMOR [None]
